FAERS Safety Report 9282907 (Version 1)
Quarter: 2013Q2

REPORT INFORMATION
  Report Type: Spontaneous
  Country: US (occurrence: US)
  Receive Date: 20130510
  Receipt Date: 20130510
  Transmission Date: 20140414
  Serious: Yes (Life-Threatening, Hospitalization)
  Sender: FDA-Public Use
  Company Number: US-JNJFOC-20130105532

PATIENT
  Age: 37 Year
  Sex: Female
  Weight: 156.49 kg

DRUGS (6)
  1. TRINESSA [Suspect]
     Indication: MENORRHAGIA
     Dosage: FOR 10 DAY AND THEN DISCONTINUED
     Route: 048
     Dates: start: 20101201
  2. GLIPIZIDE [Concomitant]
     Indication: DIABETES MELLITUS
     Route: 065
  3. METFORMIN [Concomitant]
     Indication: TYPE 2 DIABETES MELLITUS
     Route: 065
  4. LISINOPRIL [Concomitant]
     Indication: HYPERTENSION
     Route: 065
  5. LEVOTHYROXINE [Concomitant]
     Indication: HYPOTHYROIDISM
     Route: 065
  6. ANTI-HYPERTENSIVE [Concomitant]
     Indication: HYPERTENSION
     Route: 065

REACTIONS (3)
  - Pulmonary embolism [Recovered/Resolved]
  - Menorrhagia [Recovered/Resolved]
  - Pain in extremity [Unknown]
